FAERS Safety Report 14453198 (Version 1)
Quarter: 2018Q1

REPORT INFORMATION
  Report Type: Spontaneous
  Country: RU (occurrence: RU)
  Receive Date: 20180129
  Receipt Date: 20180129
  Transmission Date: 20180509
  Serious: Yes (Hospitalization, Other)
  Sender: FDA-Public Use
  Company Number: RU-ASTRAZENECA-2018SE09963

PATIENT
  Age: 70 Year
  Sex: Female
  Weight: 90 kg

DRUGS (10)
  1. INSULIN [Concomitant]
     Active Substance: INSULIN NOS
  2. BRILINTA [Suspect]
     Active Substance: TICAGRELOR
     Indication: MYOCARDIAL INFARCTION
     Route: 048
     Dates: start: 201705
  3. DIACARB [Concomitant]
  4. SORBIFER DURULES [Concomitant]
     Active Substance: FERROUS SULFATE
  5. PREDUCTAL [Concomitant]
     Active Substance: TRIMETAZIDINE DIHYDROCHLORIDE
  6. FUROSEMIDE. [Concomitant]
     Active Substance: FUROSEMIDE
  7. KETOSTERIL [Concomitant]
     Active Substance: AMINO ACIDS
  8. DIUVER [Concomitant]
     Active Substance: TORSEMIDE
  9. VEROSPIRON [Concomitant]
     Active Substance: SPIRONOLACTONE
  10. CORVALOL [Concomitant]
     Active Substance: BROMISOVAL\PHENOBARBITAL SODIUM

REACTIONS (3)
  - Fluid retention [Unknown]
  - Dyspnoea [Recovering/Resolving]
  - Renal disorder [Not Recovered/Not Resolved]

NARRATIVE: CASE EVENT DATE: 201709
